FAERS Safety Report 16111778 (Version 1)
Quarter: 2019Q2

REPORT INFORMATION
  Report Type: Spontaneous
  Country: US (occurrence: US)
  Receive Date: 20190322
  Receipt Date: 20190322
  Transmission Date: 20190711
  Serious: Yes (Other)
  Sender: FDA-Public Use
  Company Number: None

PATIENT
  Age: 48 Year
  Sex: Female
  Weight: 76.5 kg

DRUGS (1)
  1. ADVIL [Suspect]
     Active Substance: IBUPROFEN
     Indication: HEADACHE
     Route: 048
     Dates: start: 20190321, end: 20190321

REACTIONS (4)
  - Oesophageal discomfort [None]
  - Product physical issue [None]
  - Nausea [None]
  - Chest pain [None]

NARRATIVE: CASE EVENT DATE: 20190321
